FAERS Safety Report 17606609 (Version 10)
Quarter: 2021Q4

REPORT INFORMATION
  Report Type: Report from Study
  Country: US (occurrence: US)
  Receive Date: 20200331
  Receipt Date: 20211026
  Transmission Date: 20220304
  Serious: Yes (Death, Hospitalization, Other)
  Sender: FDA-Public Use
  Company Number: US-SHIRE-US202011655

PATIENT
  Sex: Female
  Weight: 78 kg

DRUGS (50)
  1. HUMAN IMMUNOGLOBULIN G\HYALURONIDASE RECOMBINANT HUMAN [Suspect]
     Active Substance: HUMAN IMMUNOGLOBULIN G\HYALURONIDASE RECOMBINANT HUMAN
     Indication: Angina pectoris
     Dosage: 25 GRAM, Q4WEEKS
     Route: 058
     Dates: start: 20181204
  2. HUMAN IMMUNOGLOBULIN G\HYALURONIDASE RECOMBINANT HUMAN [Suspect]
     Active Substance: HUMAN IMMUNOGLOBULIN G\HYALURONIDASE RECOMBINANT HUMAN
     Indication: Type 1 diabetes mellitus
     Dosage: 25 GRAM, Q4WEEKS
     Route: 058
     Dates: start: 20190102
  3. HUMAN IMMUNOGLOBULIN G\HYALURONIDASE RECOMBINANT HUMAN [Suspect]
     Active Substance: HUMAN IMMUNOGLOBULIN G\HYALURONIDASE RECOMBINANT HUMAN
     Indication: Chronic kidney disease
     Dosage: 25 GRAM, Q4WEEKS
     Route: 058
     Dates: start: 20190930
  4. HUMAN IMMUNOGLOBULIN G\HYALURONIDASE RECOMBINANT HUMAN [Suspect]
     Active Substance: HUMAN IMMUNOGLOBULIN G\HYALURONIDASE RECOMBINANT HUMAN
     Dosage: 25 GRAM, Q4WEEKS
     Route: 058
     Dates: start: 20191001
  5. HUMAN IMMUNOGLOBULIN G\HYALURONIDASE RECOMBINANT HUMAN [Suspect]
     Active Substance: HUMAN IMMUNOGLOBULIN G\HYALURONIDASE RECOMBINANT HUMAN
     Dosage: 25 GRAM, Q4WEEKS
     Route: 058
     Dates: start: 20181204
  6. ACETAMINOPHEN [Concomitant]
     Active Substance: ACETAMINOPHEN
  7. DIPHENHYDRAMINE [Concomitant]
     Active Substance: DIPHENHYDRAMINE
  8. SODIUM CHLORIDE [Concomitant]
     Active Substance: SODIUM CHLORIDE
  9. EPINEPHRINE [Concomitant]
     Active Substance: EPINEPHRINE
  10. LMX4 [Concomitant]
     Active Substance: LIDOCAINE
  11. HUMALOG [Concomitant]
     Active Substance: INSULIN LISPRO
  12. SINEMET [Concomitant]
     Active Substance: CARBIDOPA\LEVODOPA
  13. PREMARIN [Concomitant]
     Active Substance: ESTROGENS, CONJUGATED
  14. ZOLOFT [Concomitant]
     Active Substance: SERTRALINE HYDROCHLORIDE
  15. VALACYCLOVIR [Concomitant]
     Active Substance: VALACYCLOVIR HYDROCHLORIDE
  16. SYNTHROID [Concomitant]
     Active Substance: LEVOTHYROXINE SODIUM
  17. ZOFRAN [Concomitant]
     Active Substance: ONDANSETRON HYDROCHLORIDE
  18. ASPIRIN [Concomitant]
     Active Substance: ASPIRIN
  19. MOMETASONE FUROATE [Concomitant]
     Active Substance: MOMETASONE FUROATE
  20. LEVEMIR [Concomitant]
     Active Substance: INSULIN DETEMIR
  21. FLUCONAZOLE [Concomitant]
     Active Substance: FLUCONAZOLE
  22. SYMBICORT [Concomitant]
     Active Substance: BUDESONIDE\FORMOTEROL FUMARATE DIHYDRATE
  23. LAMOTRIGINE [Concomitant]
     Active Substance: LAMOTRIGINE
  24. COMBIVENT RESPIMAT [Concomitant]
     Active Substance: ALBUTEROL SULFATE\IPRATROPIUM BROMIDE
  25. ROSUVASTATIN CALCIUM [Concomitant]
     Active Substance: ROSUVASTATIN CALCIUM
     Indication: Product used for unknown indication
  26. POTASSIUM CHLORIDE [Concomitant]
     Active Substance: POTASSIUM CHLORIDE
  27. VITAMIN D3 [Concomitant]
     Active Substance: CHOLECALCIFEROL
  28. VITAMIN B12 [Concomitant]
     Active Substance: CYANOCOBALAMIN
  29. GABAPENTIN [Concomitant]
     Active Substance: GABAPENTIN
  30. PROBIOTICS NOS [Concomitant]
     Active Substance: PROBIOTICS NOS
  31. ZYRTEC [Concomitant]
     Active Substance: CETIRIZINE HYDROCHLORIDE
  32. ISOSORBIDE MONONITRATE [Concomitant]
     Active Substance: ISOSORBIDE MONONITRATE
  33. RABEPRAZOLE [Concomitant]
     Active Substance: RABEPRAZOLE
  34. LASIX [Concomitant]
     Active Substance: FUROSEMIDE
  35. CALCIUM CARBONATE\CHOLECALCIFEROL [Concomitant]
     Active Substance: CALCIUM CARBONATE\CHOLECALCIFEROL
  36. RANOLAZINE [Concomitant]
     Active Substance: RANOLAZINE
  37. SPIRONOLACTONE [Concomitant]
     Active Substance: SPIRONOLACTONE
  38. ABILIFY [Concomitant]
     Active Substance: ARIPIPRAZOLE
  39. MUCINEX DM [Concomitant]
     Active Substance: DEXTROMETHORPHAN HYDROBROMIDE\GUAIFENESIN
  40. BENZTROPINE MESYLATE [Concomitant]
     Active Substance: BENZTROPINE MESYLATE
  41. NITROGLYCERIN [Concomitant]
     Active Substance: NITROGLYCERIN
  42. TOPROL XL [Concomitant]
     Active Substance: METOPROLOL SUCCINATE
  43. POMALYST [Concomitant]
     Active Substance: POMALIDOMIDE
  44. CARBOXYMETHYLCELLULOSE [Concomitant]
     Active Substance: CARBOXYMETHYLCELLULOSE
  45. IPRATROPIUM BROMIDE [Concomitant]
     Active Substance: IPRATROPIUM BROMIDE
  46. PROBIOTICS NOS [Concomitant]
     Active Substance: PROBIOTICS NOS
  47. ALBUTEROL [Concomitant]
     Active Substance: ALBUTEROL
  48. AMOXICILLIN [Concomitant]
     Active Substance: AMOXICILLIN
     Dosage: UNK
     Route: 065
  49. CLAVULANATE POTASSIUM [Concomitant]
     Active Substance: CLAVULANATE POTASSIUM
     Dosage: UNK
     Route: 065
  50. BANOPHEN [Concomitant]
     Active Substance: DIPHENHYDRAMINE HYDROCHLORIDE

REACTIONS (9)
  - Neoplasm malignant [Fatal]
  - Cardiac failure [Fatal]
  - Pneumonia [Unknown]
  - Platelet count decreased [Unknown]
  - Hospitalisation [Unknown]
  - Cardiac valve disease [Unknown]
  - Breast cancer [Unknown]
  - Bronchitis [Unknown]
  - Intentional product use issue [Unknown]
